FAERS Safety Report 21812314 (Version 5)
Quarter: 2024Q3

REPORT INFORMATION
  Report Type: Spontaneous
  Country: US (occurrence: US)
  Receive Date: 20230103
  Receipt Date: 20240902
  Transmission Date: 20241017
  Serious: Yes (Other)
  Sender: PFIZER
  Company Number: US-PFIZER INC-2021498153

PATIENT
  Age: 32 Year
  Sex: Female
  Weight: 72.109 kg

DRUGS (2)
  1. TOVIAZ [Suspect]
     Active Substance: FESOTERODINE FUMARATE
     Indication: Micturition disorder
     Dosage: 8 MG TAKEN ONCE A DAY / EVERY PM (IN THE EVENING) 7 DAYS A WEEK
     Route: 048
  2. PREMARIN [Suspect]
     Active Substance: ESTROGENS, CONJUGATED
     Indication: Hot flush
     Dosage: 0.45 MG (MONDAY, WEDNESDAY, AND FRIDAY)
     Route: 048

REACTIONS (12)
  - Spinal fracture [Unknown]
  - Knee operation [Unknown]
  - Hip surgery [Unknown]
  - Spinal operation [Unknown]
  - Shoulder arthroplasty [Unknown]
  - Road traffic accident [Unknown]
  - Nerve injury [Unknown]
  - Neuropathy peripheral [Unknown]
  - Arthralgia [Unknown]
  - Pain [Unknown]
  - Emotional disorder [Unknown]
  - Middle insomnia [Unknown]

NARRATIVE: CASE EVENT DATE: 19660101
